FAERS Safety Report 10216338 (Version 2)
Quarter: 2014Q2

REPORT INFORMATION
  Report Type: Other
  Country: CA (occurrence: CA)
  Receive Date: 20140604
  Receipt Date: 20140604
  Transmission Date: 20141212
  Serious: Yes (Hospitalization, Other)
  Sender: FDA-Public Use
  Company Number: CA-GSKPPD-2014GSK013569

PATIENT
  Sex: Male

DRUGS (5)
  1. AVANDIA [Suspect]
     Indication: DIABETES MELLITUS
     Dosage: AVANDIA WAS NOT LISTED AMONG THE PATIENT^S DISCHARGE RECORDS.
     Route: 048
  2. ENTERIC COATED ASPIRIN [Concomitant]
     Route: 048
  3. METOPROLOL [Concomitant]
     Route: 048
  4. ALTACE [Concomitant]
     Route: 048
  5. PLAVIX [Concomitant]
     Route: 048

REACTIONS (4)
  - Acute coronary syndrome [None]
  - Coronary angioplasty [Recovered/Resolved]
  - Coronary arterial stent insertion [Recovered/Resolved]
  - Myocardial infarction [Recovered/Resolved]
